FAERS Safety Report 6209959-3 (Version None)
Quarter: 2009Q2

REPORT INFORMATION
  Report Type: 
  Country: None (occurrence: None)
  Receive Date: 20090527
  Receipt Date: 20090518
  Transmission Date: 20091009
  Serious: Yes (Life-Threatening, Other)
  Sender: FDA-Public Use
  Company Number: 2009SP010538

PATIENT
  Age: 60 Year
  Sex: Female

DRUGS (22)
  1. LORATADINE [Suspect]
     Indication: PRURITUS GENERALISED
     Dosage: 10 MG; PO
     Route: 048
     Dates: start: 20090423, end: 20090430
  2. RAMIPRIL [Suspect]
     Indication: HYPERTENSION
     Dosage: 2.5 MG; PO
     Route: 048
     Dates: start: 20090423, end: 20090430
  3. AMOXICILLIN (CON.) [Concomitant]
  4. AQUEOUS CREAM (CON.) [Concomitant]
  5. ASPIRIN (CON.) [Concomitant]
  6. BECLOMETHASONE (CON.) [Concomitant]
  7. BENDROFLUMETHIAZIDE (CON.) [Concomitant]
  8. CETIRIZINE (CON.) [Concomitant]
  9. CODEINE PHOSPHATE (CON.) [Concomitant]
  10. DAKACORT (CON.) [Concomitant]
  11. DICLOFENAC (CON.) [Concomitant]
  12. FLUCLOXACILLIN (CON.) [Concomitant]
  13. GABAPENTIN (CON.) [Concomitant]
  14. GASTROCOTE (CON.) [Concomitant]
  15. HYPROMELLOSE (CON.) [Concomitant]
  16. KLIOFEM (CON.) [Concomitant]
  17. OMEPRAZOLE (CON.) [Concomitant]
  18. PARACETAMOL (CON.) [Concomitant]
  19. PEPPERMINT OIL (CON.) [Concomitant]
  20. SALBUTAMOL (CON.) [Concomitant]
  21. THIAMINE (CON.) [Concomitant]
  22. VITAMIN B (CON.) [Concomitant]

REACTIONS (2)
  - ANGIOEDEMA [None]
  - OBSTRUCTIVE AIRWAYS DISORDER [None]
